FAERS Safety Report 5624043-5 (Version None)
Quarter: 2008Q1

REPORT INFORMATION
  Report Type: 
  Country: None (occurrence: None)
  Receive Date: 20080213
  Receipt Date: 20070620
  Transmission Date: 20080703
  Serious: Yes (Other)
  Sender: FDA-Public Use
  Company Number: US-KINGPHARMUSA00001-K200700777

PATIENT

DRUGS (1)
  1. EPIPEN [Suspect]
     Indication: HYPERSENSITIVITY
     Dosage: .3 MG, SINGLE
     Dates: start: 20070601, end: 20070601

REACTIONS (5)
  - ACCIDENTAL EXPOSURE [None]
  - CYANOSIS [None]
  - INJECTION SITE DISCOLOURATION [None]
  - PARAESTHESIA [None]
  - VASOCONSTRICTION [None]
